FAERS Safety Report 8418058-1 (Version None)
Quarter: 2012Q2

REPORT INFORMATION
  Report Type: 
  Country: None (occurrence: None)
  Receive Date: 20120604
  Receipt Date: 20120604
  Transmission Date: 20120825
  Serious: Yes (Other)
  Sender: FDA-Public Use
  Company Number: None

PATIENT
  Sex: Male
  Weight: 102.0593 kg

DRUGS (5)
  1. SEROQUEL [Suspect]
     Indication: ATTENTION DEFICIT/HYPERACTIVITY DISORDER
     Dosage: 25MG ONCE QPM, 50MG ONCE BID, 100 MG 1AM, 2 100MG ONCE PM
  2. SEROQUEL [Suspect]
     Indication: AUTISM SPECTRUM DISORDER
     Dosage: 25MG ONCE QPM, 50MG ONCE BID, 100 MG 1AM, 2 100MG ONCE PM
  3. CLONIDINE [Concomitant]
  4. RITALIN [Concomitant]
  5. STRATTERA [Concomitant]

REACTIONS (4)
  - INCREASED APPETITE [None]
  - DRUG EFFECT DECREASED [None]
  - PRODUCT SUBSTITUTION ISSUE [None]
  - ANGER [None]
